FAERS Safety Report 5139566-5 (Version None)
Quarter: 2006Q4

REPORT INFORMATION
  Report Type: 
  Country: None (occurrence: None)
  Receive Date: 20061024
  Receipt Date: 20061010
  Transmission Date: 20070319
  Serious: Yes (Other)
  Sender: FDA-Public Use
  Company Number: 3295

PATIENT
  Age: 21 Year
  Sex: Female

DRUGS (1)
  1. AMNESTEEM [Suspect]
     Dosage: 20 MG, TID, PO
     Route: 048
     Dates: start: 20060909, end: 20060922

REACTIONS (3)
  - DRUG EXPOSURE DURING PREGNANCY [None]
  - PREGNANCY ON ORAL CONTRACEPTIVE [None]
  - PREGNANCY WITH CONTRACEPTIVE DEVICE [None]
